APPROVED DRUG PRODUCT: TOPICORT
Active Ingredient: DESOXIMETASONE
Strength: 0.05% **Federal Register determination that product was not discontinued or withdrawn for safety or effectiveness reasons**
Dosage Form/Route: GEL;TOPICAL
Application: N018586 | Product #001
Applicant: TARO PHARMACEUTICAL INDUSTRIES LTD
Approved: Mar 29, 1982 | RLD: Yes | RS: No | Type: DISCN